FAERS Safety Report 6406716-X (Version None)
Quarter: 2009Q4

REPORT INFORMATION
  Report Type: 
  Country: None (occurrence: None)
  Receive Date: 20091020
  Receipt Date: 20091012
  Transmission Date: 20100525
  Serious: Yes (Other)
  Sender: FDA-Public Use
  Company Number: US-ELI_LILLY_AND_COMPANY-US200910002642

PATIENT
  Sex: Female

DRUGS (4)
  1. HUMALOG [Suspect]
  2. HUMALOG [Suspect]
     Dosage: UNK, UNKNOWN
  3. HUMALOG [Suspect]
     Dosage: UNK, UNK
  4. HUMALOG [Suspect]
     Dosage: UNK, UNKNOWN

REACTIONS (2)
  - BLINDNESS [None]
  - GLAUCOMA [None]
